FAERS Safety Report 8358554-9 (Version None)
Quarter: 2012Q2

REPORT INFORMATION
  Report Type: 
  Country: None (occurrence: None)
  Receive Date: 20120514
  Receipt Date: 20120507
  Transmission Date: 20120825
  Serious: Yes (Life-Threatening, Hospitalization, Other)
  Sender: FDA-Public Use
  Company Number: US-BAYER-2011-110311

PATIENT
  Age: 26 Year
  Sex: Female
  Weight: 101.13 kg

DRUGS (3)
  1. CLONIDINE [Concomitant]
  2. YAZ [Suspect]
     Indication: CONTRACEPTION
     Dosage: UNK
     Route: 048
     Dates: start: 20070101, end: 20081101
  3. LEXAPRO [Concomitant]

REACTIONS (10)
  - THROMBOPHLEBITIS SUPERFICIAL [None]
  - PAIN [None]
  - ANHEDONIA [None]
  - DEEP VEIN THROMBOSIS [None]
  - ANXIETY [None]
  - FATIGUE [None]
  - ASTHENIA [None]
  - INJURY [None]
  - PHLEBITIS SUPERFICIAL [None]
  - GENERAL PHYSICAL HEALTH DETERIORATION [None]
